FAERS Safety Report 5585552-0 (Version None)
Quarter: 2008Q1

REPORT INFORMATION
  Report Type: 
  Country: None (occurrence: None)
  Receive Date: 20080109
  Receipt Date: 20080103
  Transmission Date: 20080703
  Serious: Yes (Other)
  Sender: FDA-Public Use
  Company Number: B0360779A

PATIENT
  Age: 49 Year
  Sex: Female

DRUGS (3)
  1. PAROXETINE HYDROCHLORIDE [Suspect]
     Route: 065
     Dates: start: 20000107
  2. CIPRAMIL [Concomitant]
     Dates: start: 20020409
  3. IMIPRAMINE [Concomitant]
     Dates: start: 20020305

REACTIONS (7)
  - AGGRESSION [None]
  - AGITATION [None]
  - DRUG WITHDRAWAL SYNDROME [None]
  - HYPERHIDROSIS [None]
  - JOINT STIFFNESS [None]
  - NAUSEA [None]
  - VOMITING [None]
